FAERS Safety Report 20592825 (Version 4)
Quarter: 2022Q2

REPORT INFORMATION
  Report Type: Spontaneous
  Country: US (occurrence: US)
  Receive Date: 20220315
  Receipt Date: 20220516
  Transmission Date: 20220720
  Serious: No
  Sender: FDA-Public Use
  Company Number: US-AMGEN-USASP2022040256

PATIENT
  Age: 55 Year
  Sex: Female
  Weight: 81.179 kg

DRUGS (7)
  1. NEULASTA [Suspect]
     Active Substance: PEGFILGRASTIM
     Indication: Neutropenia
     Dosage: 6 MICROGRAM
     Route: 058
     Dates: start: 20210312
  2. NEULASTA [Suspect]
     Active Substance: PEGFILGRASTIM
     Dosage: 6 MICROGRAM
     Route: 058
  3. HALAVEN [Concomitant]
     Active Substance: ERIBULIN MESYLATE
     Dosage: 1.4 MG/M2
     Route: 042
  4. VOTRIENT [Concomitant]
     Active Substance: PAZOPANIB HYDROCHLORIDE
     Dosage: 600 MILLIGRAM, QD
  5. DOXIL [Concomitant]
     Active Substance: DOXORUBICIN HYDROCHLORIDE
     Dosage: UNK
     Route: 065
  6. ADRIAMYCIN [Concomitant]
     Active Substance: DOXORUBICIN HYDROCHLORIDE
     Dosage: UNK
     Route: 065
  7. YONDELIS [Concomitant]
     Active Substance: TRABECTEDIN
     Dosage: UNK
     Route: 065

REACTIONS (2)
  - Unintentional medical device removal [Unknown]
  - Off label use [Unknown]

NARRATIVE: CASE EVENT DATE: 20220304
